FAERS Safety Report 6166092-7 (Version None)
Quarter: 2009Q2

REPORT INFORMATION
  Report Type: 
  Country: None (occurrence: None)
  Receive Date: 20090424
  Receipt Date: 20090417
  Transmission Date: 20091009
  Serious: Yes (Other)
  Sender: FDA-Public Use
  Company Number: FR-JNJFOC-20090404377

PATIENT
  Age: 62 Year
  Sex: Female

DRUGS (9)
  1. RISPERDAL [Suspect]
     Indication: MENTAL RETARDATION
     Route: 048
  2. RISPERDAL [Suspect]
     Indication: BIPOLAR DISORDER
     Route: 048
  3. HALDOL [Suspect]
     Indication: MENTAL RETARDATION
     Route: 048
  4. HALDOL [Suspect]
     Indication: BIPOLAR DISORDER
     Route: 048
  5. DEPAMIDE [Concomitant]
     Route: 065
  6. ALDACTONE [Concomitant]
     Route: 065
  7. IMOVANE [Concomitant]
     Route: 065
  8. SULFARLEM [Concomitant]
     Route: 065
  9. VENTOLIN [Concomitant]
     Route: 065

REACTIONS (1)
  - ANGLE CLOSURE GLAUCOMA [None]
